FAERS Safety Report 13028182 (Version 5)
Quarter: 2017Q2

REPORT INFORMATION
  Report Type: Spontaneous
  Country: JP (occurrence: JP)
  Receive Date: 20161214
  Receipt Date: 20170602
  Transmission Date: 20170830
  Serious: Yes (Other)
  Sender: FDA-Public Use
  Company Number: JP-ABBVIE-16K-087-1804173-00

PATIENT
  Age: 17 Year
  Sex: Female
  Weight: 40.5 kg

DRUGS (6)
  1. MESALAZINE [Concomitant]
     Active Substance: MESALAMINE
     Indication: CROHN^S DISEASE
     Route: 048
     Dates: start: 20140922
  2. MESALAZINE [Concomitant]
     Active Substance: MESALAMINE
  3. CLOSTRIDIUM BUTYRICUM [Concomitant]
     Active Substance: CLOSTRIDIUM BUTYRICUM SPORES STRAIN M-55
     Indication: CROHN^S DISEASE
     Route: 048
     Dates: start: 20140910
  4. HUMIRA [Suspect]
     Active Substance: ADALIMUMAB
     Indication: CROHN^S DISEASE
     Route: 058
     Dates: start: 20141106, end: 20141106
  5. HUMIRA [Suspect]
     Active Substance: ADALIMUMAB
     Route: 058
     Dates: start: 20141204, end: 20141204
  6. HUMIRA [Suspect]
     Active Substance: ADALIMUMAB
     Route: 058
     Dates: start: 20141120, end: 20141120

REACTIONS (9)
  - Gastrointestinal erosion [Unknown]
  - Complement factor increased [Unknown]
  - Peripheral artery stenosis [Unknown]
  - Crohn^s disease [Unknown]
  - Staphylococcus test positive [Unknown]
  - Pain in extremity [Unknown]
  - Cough [Unknown]
  - Takayasu^s arteritis [Recovering/Resolving]
  - Arteritis [Unknown]

NARRATIVE: CASE EVENT DATE: 20141106
